FAERS Safety Report 8823975 (Version 1)
Quarter: 2012Q4

REPORT INFORMATION
  Report Type: 
  Country: JP (occurrence: JP)
  Receive Date: 20121003
  Receipt Date: 20121003
  Transmission Date: 20130627
  Serious: Yes (Hospitalization, Other)
  Sender: FDA-Public Use
  Company Number: JP-009507513-1206USA01725

PATIENT
  Age: 67 Year
  Sex: Female

DRUGS (15)
  1. FOSAPREPITANT DIMEGLUMINE [Suspect]
     Indication: PROPHYLAXIS OF NAUSEA AND VOMITING
     Dosage: 150 mg, qd
     Route: 041
     Dates: start: 20120313, end: 20120313
  2. FOSAPREPITANT DIMEGLUMINE [Suspect]
     Dosage: 150 mg, qd
     Route: 041
     Dates: start: 20120403, end: 20120403
  3. FOSAPREPITANT DIMEGLUMINE [Suspect]
     Dosage: 150 mg, qd
     Route: 041
     Dates: start: 20120424, end: 20120424
  4. FARMORUBICIN [Suspect]
     Indication: BREAST CANCER
     Dosage: 130 mg, qd
     Route: 041
     Dates: start: 20120313, end: 20120313
  5. FARMORUBICIN [Suspect]
     Dosage: 130 mg, qd
     Route: 041
     Dates: start: 20120403, end: 20120403
  6. FARMORUBICIN [Suspect]
     Dosage: 130 mg, qd
     Route: 041
     Dates: start: 20120424, end: 20120424
  7. FARMORUBICIN [Suspect]
     Dosage: 130 mg, qd
     Route: 041
     Dates: start: 20120515, end: 20120515
  8. ENDOXAN [Concomitant]
     Indication: BREAST CANCER
     Dosage: 1000 mg, qd
     Route: 041
     Dates: start: 20120313, end: 20120313
  9. ENDOXAN [Concomitant]
     Dosage: 1000 UNK, UNK
     Route: 041
     Dates: start: 20120403, end: 20120403
  10. ENDOXAN [Concomitant]
     Dosage: 1000 UNK, UNK
     Route: 041
     Dates: start: 20120424, end: 20120424
  11. ENDOXAN [Concomitant]
     Dosage: 1000 UNK, UNK
     Route: 041
     Dates: start: 20120515, end: 20120515
  12. ALOXI [Concomitant]
     Dosage: 0.75 mg, qd
     Route: 041
     Dates: start: 20120313, end: 20120515
  13. DECADRON [Concomitant]
     Dosage: 13.2 mg, qd
     Route: 041
     Dates: start: 20120313, end: 20120515
  14. GASTER [Concomitant]
     Dosage: 20 mg, qd
     Route: 041
     Dates: start: 20120313, end: 20120515
  15. POLARAMINE TABLETS [Concomitant]
     Dosage: 5 mg, qd
     Route: 041
     Dates: start: 20120313, end: 20120515

REACTIONS (7)
  - Injection site vasculitis [Recovered/Resolved]
  - White blood cell count decreased [Recovered/Resolved]
  - Injection site infection [Recovered/Resolved]
  - Injection site cellulitis [Recovered/Resolved]
  - Injection site pain [Recovered/Resolved]
  - Injection site ulcer [Recovered/Resolved]
  - Joint contracture [Recovered/Resolved]
